FAERS Safety Report 8378402-0 (Version None)
Quarter: 2012Q2

REPORT INFORMATION
  Report Type: 
  Country: None (occurrence: None)
  Receive Date: 20120522
  Receipt Date: 20120507
  Transmission Date: 20120825
  Serious: Yes (Other)
  Sender: FDA-Public Use
  Company Number: FR-FRI-1000030324

PATIENT
  Age: 61 Year
  Sex: Female
  Weight: 45 kg

DRUGS (8)
  1. REMIFENTANIL [Concomitant]
     Indication: ANAESTHESIA
  2. SEVOFLURANE [Concomitant]
     Indication: ANAESTHESIA
  3. PROPOFOL [Concomitant]
     Indication: ANAESTHESIA
     Dosage: 2.5 MG/KG TARGET CONTOLLED INFUSION 2NG/ML
  4. ROCURONIUM BROMIDE [Suspect]
     Indication: ANAESTHESIA
     Dosage: 0.6 MG/KG
  5. LEVOTHYROXINE SODIUM [Concomitant]
  6. OPIODS NOS [Concomitant]
     Indication: PAIN
  7. PROPRANOLOL [Suspect]
     Dosage: 40 MG
  8. HYDROXYZINE [Concomitant]
     Dosage: 50 MG

REACTIONS (1)
  - ANAPHYLACTIC REACTION [None]
